FAERS Safety Report 6660447-X (Version None)
Quarter: 2010Q1

REPORT INFORMATION
  Report Type: 
  Country: None (occurrence: None)
  Receive Date: 20100331
  Receipt Date: 20100329
  Transmission Date: 20100710
  Serious: Yes (Other)
  Sender: FDA-Public Use
  Company Number: JP-SANOFI-AVENTIS-2010SA018106

PATIENT

DRUGS (2)
  1. AMARYL [Suspect]
  2. PIOGLITAZONE [Concomitant]

REACTIONS (1)
  - THROMBOCYTOPENIC PURPURA [None]
